FAERS Safety Report 9339457 (Version 1)
Quarter: 2013Q2

REPORT INFORMATION
  Report Type: Spontaneous
  Country: US (occurrence: US)
  Receive Date: 20130610
  Receipt Date: 20130610
  Transmission Date: 20140414
  Serious: No
  Sender: FDA-Public Use
  Company Number: US-009507513-1305USA012768

PATIENT
  Age: 54 Year
  Sex: Male

DRUGS (1)
  1. PEGINTRON [Suspect]
     Dosage: 150 MICROGRAM, UNK
     Route: 058
     Dates: start: 20130517

REACTIONS (4)
  - Dysphagia [Not Recovered/Not Resolved]
  - Hypersomnia [Not Recovered/Not Resolved]
  - Malaise [Not Recovered/Not Resolved]
  - Product quality issue [Unknown]
